FAERS Safety Report 9485880 (Version 4)
Quarter: 2013Q4

REPORT INFORMATION
  Report Type: Spontaneous
  Country: GB (occurrence: GB)
  Receive Date: 20130829
  Receipt Date: 20131130
  Transmission Date: 20140711
  Serious: Yes (Death, Hospitalization)
  Sender: FDA-Public Use
  Company Number: PHFR2013GB004929

PATIENT
  Age: 50 Year
  Sex: Male

DRUGS (2)
  1. CLOZARIL [Suspect]
     Indication: SCHIZOPHRENIA
     Dosage: 525 MG,
     Route: 048
     Dates: start: 20120730
  2. OLANZAPINE [Concomitant]
     Dosage: 20 MG AT NIGHT (DAILY)

REACTIONS (3)
  - Death [Fatal]
  - Gastrointestinal infection [Recovered/Resolved]
  - Malaise [Recovered/Resolved]
